FAERS Safety Report 6030162-4 (Version None)
Quarter: 2009Q1

REPORT INFORMATION
  Report Type: 
  Country: None (occurrence: None)
  Receive Date: 20090107
  Receipt Date: 20081224
  Transmission Date: 20090719
  Serious: Yes (Hospitalization, Other)
  Sender: FDA-Public Use
  Company Number: KR-PFIZER INC-2008160243

PATIENT

DRUGS (3)
  1. SUNITINIB MALATE [Suspect]
     Indication: HEPATIC NEOPLASM MALIGNANT
     Dosage: 37.5 MG, 1X/DAY
     Route: 048
     Dates: start: 20081208
  2. METOCLOPRAMIDE [Concomitant]
     Indication: HEPATIC NEOPLASM MALIGNANT
     Dosage: 5 MG, 3X/DAY
     Dates: start: 20081210, end: 20081224
  3. CHLORHEXIDINE [Concomitant]
     Indication: MUCOSAL INFLAMMATION
     Dosage: 0.1 PERCENT, 100 ML, AS NEEDED
     Dates: start: 20081210

REACTIONS (4)
  - ADVERSE DRUG REACTION [None]
  - BLOOD BILIRUBIN INCREASED [None]
  - JAUNDICE [None]
  - PLATELET COUNT DECREASED [None]
